FAERS Safety Report 15769800 (Version 1)
Quarter: 2018Q4

REPORT INFORMATION
  Report Type: Spontaneous
  Country: GB (occurrence: GB)
  Receive Date: 20181228
  Receipt Date: 20181228
  Transmission Date: 20190205
  Serious: Yes (Life-Threatening, Other)
  Sender: FDA-Public Use
  Company Number: GB-AUROBINDO-AUR-APL-2018-062906

PATIENT
  Age: 52 Year
  Sex: Female
  Weight: 55.6 kg

DRUGS (7)
  1. PATENTBLAU V /00168401/ [Suspect]
     Active Substance: SULFAN BLUE
     Indication: SURGERY
     Dosage: 2 MILLILITER, UNK
     Route: 065
     Dates: start: 20181124, end: 20181124
  2. DICLOFENAC [Concomitant]
     Active Substance: DICLOFENAC
     Indication: ANAESTHESIA
     Dosage: 75 MILLIGRAM, UNK
     Route: 042
     Dates: start: 20181124, end: 20181124
  3. PARACETAMOL [Concomitant]
     Active Substance: ACETAMINOPHEN
     Indication: ANAESTHESIA
     Dosage: 1 GRAM, UNK
     Route: 042
     Dates: start: 20181124, end: 20181126
  4. REMIFENTANIL [Concomitant]
     Active Substance: REMIFENTANIL
     Indication: ANAESTHESIA
     Dosage: UNK
     Route: 042
     Dates: start: 20181124, end: 20181124
  5. PROPOFOL. [Concomitant]
     Active Substance: PROPOFOL
     Indication: ANAESTHESIA
     Dosage: UNK
     Route: 042
     Dates: start: 20181124, end: 20181125
  6. CO-AMOXICLAV [Suspect]
     Active Substance: AMOXICILLIN\CLAVULANATE POTASSIUM
     Indication: ANTIBIOTIC PROPHYLAXIS
     Dosage: 300 MILLIGRAM, UNK (300MG OF 1.2G DOSE GIVEN)
     Route: 042
     Dates: start: 20181124, end: 20181124
  7. ALFENTANIL. [Concomitant]
     Active Substance: ALFENTANIL
     Indication: ANAESTHESIA
     Dosage: 1000 MILLIGRAM, UNK
     Route: 042
     Dates: start: 20181124, end: 20181124

REACTIONS (1)
  - Anaphylactic shock [Recovered/Resolved]

NARRATIVE: CASE EVENT DATE: 20181124
